FAERS Safety Report 5304941-2 (Version None)
Quarter: 2007Q2

REPORT INFORMATION
  Report Type: 
  Country: None (occurrence: None)
  Receive Date: 20070423
  Receipt Date: 20070411
  Transmission Date: 20071010
  Serious: Yes (Hospitalization, Other)
  Sender: FDA-Public Use
  Company Number: US-SHR-US-2007-013211

PATIENT
  Age: 76 Year
  Sex: Female
  Weight: 63.9 kg

DRUGS (4)
  1. LEUKINE [Suspect]
     Dosage: 500 A?G, UNK
     Route: 058
     Dates: start: 20061227
  2. PROCRIT [Concomitant]
     Route: 058
  3. ETOPOSIDE [Concomitant]
     Dosage: 96 MG, Q3-4 WEEKS
     Route: 042
     Dates: start: 20061221
  4. CISPLATIN [Concomitant]
     Dosage: 160 MG Q3-4 WEEKS
     Route: 042
     Dates: start: 20061221

REACTIONS (2)
  - PLATELET COUNT DECREASED [None]
  - TRANSFUSION REACTION [None]
